FAERS Safety Report 24071250 (Version 1)
Quarter: 2024Q3

REPORT INFORMATION
  Report Type: Report from Study
  Country: US (occurrence: US)
  Receive Date: 20240710
  Receipt Date: 20240710
  Transmission Date: 20241017
  Serious: No
  Sender: ROCHE
  Company Number: US-ROCHE-3564577

PATIENT
  Age: 2 Month
  Sex: Male
  Weight: 3.93 kg

DRUGS (2)
  1. EVRYSDI [Suspect]
     Active Substance: RISDIPLAM
     Indication: Spinal muscular atrophy
     Route: 065
  2. PRELONE [Concomitant]
     Active Substance: PREDNISOLONE
     Dosage: 15 MG/ML
     Route: 048

REACTIONS (5)
  - Vomiting [Unknown]
  - Nasal congestion [Unknown]
  - Diarrhoea [Unknown]
  - Pyrexia [Unknown]
  - Viral infection [Recovered/Resolved]

NARRATIVE: CASE EVENT DATE: 20240429
